FAERS Safety Report 11632678 (Version 4)
Quarter: 2015Q4

REPORT INFORMATION
  Report Type: Spontaneous
  Country: JP (occurrence: JP)
  Receive Date: 20151015
  Receipt Date: 20151210
  Transmission Date: 20160304
  Serious: Yes (Other)
  Sender: FDA-Public Use
  Company Number: JP-NOVOPROD-466678

PATIENT
  Age: 78 Year
  Sex: Female
  Weight: 45 kg

DRUGS (5)
  1. NOVORAPID [Concomitant]
     Active Substance: INSULIN ASPART
     Indication: TYPE 2 DIABETES MELLITUS
     Dosage: THRICE DAILY
     Route: 058
  2. CRESTOR [Concomitant]
     Active Substance: ROSUVASTATIN CALCIUM
     Indication: DYSLIPIDAEMIA
     Dosage: 2.50 MG
     Route: 048
  3. TRESIBA CHU FLEXTOUCH [Suspect]
     Active Substance: INSULIN DEGLUDEC
     Indication: TYPE 2 DIABETES MELLITUS
     Dosage: 4 U, QD
     Route: 058
     Dates: start: 20150418, end: 20150430
  4. MAGMITT [Concomitant]
     Active Substance: MAGNESIUM OXIDE
     Indication: CONSTIPATION
     Dosage: UNK
     Route: 048
  5. NOVORAPID [Concomitant]
     Active Substance: INSULIN ASPART
     Dosage: 12-24 U PER DAY
     Route: 058
     Dates: start: 20150418

REACTIONS (1)
  - Drug-induced liver injury [Recovered/Resolved]

NARRATIVE: CASE EVENT DATE: 20150427
